FAERS Safety Report 4393375-3 (Version None)
Quarter: 2004Q3

REPORT INFORMATION
  Report Type: 
  Country: None (occurrence: None)
  Receive Date: 20040701
  Receipt Date: 20040618
  Transmission Date: 20050211
  Serious: Yes (Death)
  Sender: FDA-Public Use
  Company Number: 2004JP001012

PATIENT
  Age: 38 Year
  Sex: Male

DRUGS (1)
  1. PROGRAF [Suspect]
     Indication: LIVER TRANSPLANT

REACTIONS (6)
  - ASPERGILLOSIS [None]
  - ATRIOVENTRICULAR BLOCK COMPLETE [None]
  - BRAIN ABSCESS [None]
  - CHOLESTASIS [None]
  - SYSTEMIC MYCOSIS [None]
  - TRANSAMINASES INCREASED [None]
